FAERS Safety Report 4771480-7 (Version None)
Quarter: 2005Q3

REPORT INFORMATION
  Report Type: 
  Country: None (occurrence: None)
  Receive Date: 20050913
  Receipt Date: 20050913
  Transmission Date: 20060218
  Serious: No
  Sender: FDA-Public Use
  Company Number: None

PATIENT
  Age: 53 Year
  Sex: Female
  Weight: 85.2762 kg

DRUGS (1)
  1. GLUCOSAMINE/CHONDROITIN SULFATE [Suspect]
     Dates: start: 20050901, end: 20050909

REACTIONS (2)
  - ECCHYMOSIS [None]
  - PRURITUS [None]
